FAERS Safety Report 13766987 (Version 3)
Quarter: 2017Q3

REPORT INFORMATION
  Report Type: Spontaneous
  Country: CH (occurrence: CH)
  Receive Date: 20170719
  Receipt Date: 20170828
  Transmission Date: 20171127
  Serious: Yes (Death)
  Sender: FDA-Public Use
  Company Number: CH-ORION CORPORATION ORION PHARMA-17_00002473

PATIENT
  Age: 47 Year
  Sex: Male

DRUGS (5)
  1. BUSILVEX [Suspect]
     Active Substance: BUSULFAN
     Indication: ACUTE MYELOID LEUKAEMIA
     Route: 041
     Dates: start: 20170330, end: 20170404
  2. ECALTA [Suspect]
     Active Substance: ANIDULAFUNGIN
     Indication: BRONCHOPULMONARY ASPERGILLOSIS
     Route: 041
     Dates: start: 20170421, end: 20170426
  3. METHOTREXATE. [Suspect]
     Active Substance: METHOTREXATE
     Indication: PROPHYLAXIS AGAINST GRAFT VERSUS HOST DISEASE
     Route: 041
     Dates: start: 20170408, end: 20170413
  4. ENDOXAN [Suspect]
     Active Substance: CYCLOPHOSPHAMIDE
     Indication: ACUTE MYELOID LEUKAEMIA
     Route: 041
     Dates: start: 20170404, end: 20170405
  5. SANDIMMUN [Suspect]
     Active Substance: CYCLOSPORINE
     Indication: PROPHYLAXIS AGAINST GRAFT VERSUS HOST DISEASE
     Dosage: STRENGTH: 50 MG
     Route: 041
     Dates: start: 20170504

REACTIONS (12)
  - Pulmonary alveolar haemorrhage [Fatal]
  - Immune reconstitution inflammatory syndrome [Unknown]
  - Febrile neutropenia [Unknown]
  - Acute kidney injury [Unknown]
  - Respiratory failure [Fatal]
  - Staphylococcal bacteraemia [Unknown]
  - Acute respiratory distress syndrome [Fatal]
  - Device related infection [Unknown]
  - Graft versus host disease [Unknown]
  - Delirium [Unknown]
  - Bronchopulmonary aspergillosis [Unknown]
  - Mucosal inflammation [Unknown]

NARRATIVE: CASE EVENT DATE: 201704
